FAERS Safety Report 12382464 (Version 1)
Quarter: 2016Q2

REPORT INFORMATION
  Report Type: Spontaneous
  Country: US (occurrence: US)
  Receive Date: 20160518
  Receipt Date: 20160518
  Transmission Date: 20160815
  Serious: Yes (Other)
  Sender: FDA-Public Use
  Company Number: US-PFIZER INC-2016259177

PATIENT
  Age: 63 Year
  Sex: Female

DRUGS (1)
  1. CORTISONE ACETATE. [Suspect]
     Active Substance: CORTISONE ACETATE
     Indication: DRUG HYPERSENSITIVITY
     Dosage: 100 MG, DAILY

REACTIONS (2)
  - Paranoia [Recovered/Resolved]
  - Hypomania [Recovered/Resolved]
